FAERS Safety Report 4668738-9 (Version None)
Quarter: 2005Q2

REPORT INFORMATION
  Report Type: 
  Country: None (occurrence: None)
  Receive Date: 20050519
  Receipt Date: 20050512
  Transmission Date: 20051028
  Serious: Yes (Other)
  Sender: FDA-Public Use
  Company Number: 2005073892

PATIENT
  Age: 93 Year
  Sex: Female
  Weight: 51.7101 kg

DRUGS (3)
  1. NEURONTIN [Suspect]
     Indication: POST HERPETIC NEURALGIA
     Dosage: ORAL
     Route: 048
     Dates: start: 20050401, end: 20050501
  2. ANTIHYPERTENSIVES (ANTIHYPERTENSIVES) [Concomitant]
  3. CHOLESTEROL- AND TRIGLYCERIDE REDUCERS (CHOLESTEROL- AND TRIGLYCERIDE [Concomitant]

REACTIONS (6)
  - EYE HAEMORRHAGE [None]
  - IRIS DISORDER [None]
  - MYDRIASIS [None]
  - PAIN [None]
  - VISUAL ACUITY REDUCED [None]
  - VITREOUS OPACITIES [None]
